FAERS Safety Report 4635414-8 (Version None)
Quarter: 2005Q2

REPORT INFORMATION
  Report Type: 
  Country: None (occurrence: None)
  Receive Date: 20050413
  Receipt Date: 20050328
  Transmission Date: 20051028
  Serious: Yes (Other)
  Sender: FDA-Public Use
  Company Number: TRP_0093_2005

PATIENT
  Age: 47 Year
  Sex: Female

DRUGS (4)
  1. RIBASPHERE [Suspect]
     Indication: HEPATITIS C
     Dates: start: 20041117
  2. PEG-INTRON [Suspect]
     Indication: HEPATITIS C
     Dates: start: 20041117
  3. ALLOPURINOL [Concomitant]
  4. MICROZIDE [Concomitant]

REACTIONS (2)
  - ORAL INFECTION [None]
  - TOOTH DISORDER [None]
